FAERS Safety Report 10020642 (Version 6)
Quarter: 2014Q4

REPORT INFORMATION
  Report Type: Report from Study
  Country: AU (occurrence: AU)
  Receive Date: 20140319
  Receipt Date: 20141001
  Transmission Date: 20150528
  Serious: Yes (Hospitalization, Other)
  Sender: FDA-Public Use
  Company Number: AU-BRISTOL-MYERS SQUIBB COMPANY-20418976

PATIENT
  Age: 77 Year
  Sex: Female

DRUGS (4)
  1. ANTIHISTAMINE NOS [Concomitant]
     Active Substance: ANTIHISTAMINES NOS
  2. VITAMIN D [Concomitant]
     Active Substance: CHOLECALCIFEROL
  3. SPRYCEL [Suspect]
     Active Substance: DASATINIB
     Indication: CHRONIC MYELOID LEUKAEMIA
     Dosage: RESTARTED BY REDUCING DOSE TO 50MG?50MG OF SPRYCEL EACH MORNING
     Route: 048
     Dates: start: 20130401
  4. ASPIRIN. [Concomitant]
     Active Substance: ASPIRIN

REACTIONS (8)
  - Ankle fracture [Unknown]
  - Pleural effusion [Unknown]
  - Seasonal allergy [Unknown]
  - Pain in extremity [Unknown]
  - Rash [Not Recovered/Not Resolved]
  - Localised infection [Recovering/Resolving]
  - Cough [Not Recovered/Not Resolved]
  - Fatigue [Unknown]

NARRATIVE: CASE EVENT DATE: 2013
